FAERS Safety Report 8513722-8 (Version None)
Quarter: 2012Q3

REPORT INFORMATION
  Report Type: 
  Country: None (occurrence: None)
  Receive Date: 20120705
  Receipt Date: 20120621
  Transmission Date: 20120928
  Serious: Yes (Other)
  Sender: FDA-Public Use
  Company Number: KAD201206-000356

PATIENT
  Age: 23 Year
  Sex: Female

DRUGS (2)
  1. RIBAVIRIN [Suspect]
     Indication: HEPATITIS C
     Dosage: 1000 MG/DAY, 24 WEEKS
     Dates: start: 20080101
  2. PEGINTERFERON ALFA-2A (PEGINTERFERON ALFA-2A) RIBAVIRIN (RIBAVIRIN) [Suspect]
     Indication: HEPATITIS C
     Dosage: 180 MCG/WEEK, 24 WEEKS
     Dates: start: 20080101

REACTIONS (5)
  - DISEASE RECURRENCE [None]
  - DEPRESSION [None]
  - DRUG INTOLERANCE [None]
  - HODGKIN'S DISEASE [None]
  - FATIGUE [None]
